FAERS Safety Report 17371956 (Version 9)
Quarter: 2020Q4

REPORT INFORMATION
  Report Type: Spontaneous
  Country: GB (occurrence: GB)
  Receive Date: 20200205
  Receipt Date: 20201111
  Transmission Date: 20210113
  Serious: Yes (Hospitalization, Other)
  Sender: FDA-Public Use
  Company Number: GB-SA-2020SA028782

PATIENT

DRUGS (19)
  1. ONDANSETRON [Concomitant]
     Active Substance: ONDANSETRON
     Indication: NAUSEA
     Dosage: 8 MG, QD
     Route: 048
     Dates: start: 20190819, end: 20190819
  2. COLECALCIFEROL [Concomitant]
     Active Substance: CHOLECALCIFEROL
     Indication: SUPPLEMENTATION THERAPY
     Dosage: 1 DF, BID
     Route: 048
     Dates: start: 20190820, end: 20190909
  3. FUROSEMIDE. [Concomitant]
     Active Substance: FUROSEMIDE
     Indication: PLEURAL EFFUSION
     Dosage: 20 MG, QD
     Route: 042
     Dates: start: 20190819, end: 20190820
  4. MAGNESIUM SULPHATE [MAGNESIUM SULFATE] [Concomitant]
     Active Substance: MAGNESIUM SULFATE
     Indication: MINERAL SUPPLEMENTATION
     Dosage: 500 ML, QD
     Route: 042
     Dates: start: 20190820, end: 20190820
  5. FLUCONAZOLE. [Concomitant]
     Active Substance: FLUCONAZOLE
     Indication: STEM CELL TRANSPLANT
     Dosage: 50 MG, QD
     Route: 048
     Dates: start: 20190816, end: 20190909
  6. CO-AMOXICLAV [AMOXICILLIN;CLAVULANATE POTASSIUM] [Concomitant]
     Active Substance: AMOXICILLIN\CLAVULANATE POTASSIUM
     Indication: WHITE BLOOD CELL COUNT INCREASED
  7. RED BLOOD CELLS [Concomitant]
     Active Substance: HUMAN RED BLOOD CELL
     Indication: SUPPORTIVE CARE
     Dosage: 1 U, PRN (6 GIVEN IN TOTAL)
     Route: 042
     Dates: start: 20190821, end: 20190902
  8. CODEINE [Concomitant]
     Active Substance: CODEINE
     Indication: HEADACHE
     Dosage: 30 MG, QID
     Route: 048
     Dates: start: 20190819, end: 20190907
  9. CHLORPHENAMINE [Concomitant]
     Active Substance: CHLORPHENIRAMINE MALEATE
     Indication: STEM CELL TRANSPLANT
     Dosage: 10 MG, TID
     Route: 042
     Dates: start: 20190821, end: 20190907
  10. DEXAMETHASONE. [Concomitant]
     Active Substance: DEXAMETHASONE
     Indication: STEM CELL TRANSPLANT
     Dosage: 16 MG, QD
     Route: 048
     Dates: start: 20190819, end: 20190821
  11. SODIUM CHLORIDE 0.9% [Concomitant]
     Active Substance: SODIUM CHLORIDE
     Indication: FLUID REPLACEMENT
     Dosage: IVNOS1000 ML, QD
     Route: 042
     Dates: start: 20190820, end: 20190820
  12. CO-AMOXICLAV [AMOXICILLIN;CLAVULANATE POTASSIUM] [Concomitant]
     Active Substance: AMOXICILLIN\CLAVULANATE POTASSIUM
     Indication: INFECTION
     Dosage: 1200 MG, TID
     Route: 042
     Dates: start: 20190820, end: 20190825
  13. THYMOGLOBULINE [Suspect]
     Active Substance: LAPINE T-LYMPHOCYTE IMMUNE GLOBULIN
     Indication: IMMUNOSUPPRESSANT DRUG THERAPY
     Dosage: 165 MG, QD
     Route: 042
     Dates: start: 20190819, end: 20190821
  14. LEVOMEPROMAZINE [Concomitant]
     Active Substance: LEVOMEPROMAZINE
     Indication: VOMITING
  15. URSODEOXYCHOLIC ACID [Concomitant]
     Active Substance: URSODIOL
     Indication: CHOLANGITIS SCLEROSING
     Dosage: 1.4 G, QD
     Route: 048
     Dates: start: 20131206, end: 20191017
  16. CALCIUM AND VITAMIN D [Concomitant]
     Active Substance: CALCIUM\VITAMIN D
     Indication: SUPPLEMENTATION THERAPY
     Dosage: 1 DF, QD
     Route: 048
     Dates: start: 20190816
  17. OMEPRAZOLE. [Concomitant]
     Active Substance: OMEPRAZOLE
     Indication: STEM CELL TRANSPLANT
     Dosage: 20 MG, QD
     Route: 048
     Dates: start: 20190816, end: 20190907
  18. CO-AMOXICLAV [AMOXICILLIN;CLAVULANATE POTASSIUM] [Concomitant]
     Active Substance: AMOXICILLIN\CLAVULANATE POTASSIUM
     Indication: C-REACTIVE PROTEIN INCREASED
  19. LEVOMEPROMAZINE [Concomitant]
     Active Substance: LEVOMEPROMAZINE
     Indication: NAUSEA
     Dosage: 6.2 MG, QID
     Route: 048
     Dates: start: 20190820, end: 20190907

REACTIONS (22)
  - Thrombotic microangiopathy [Not Recovered/Not Resolved]
  - Hypoxia [Recovered/Resolved]
  - Pleural effusion [Recovered/Resolved]
  - Nausea [Recovered/Resolved]
  - Contusion [Recovered/Resolved]
  - Rash papular [Recovered/Resolved]
  - Hypotension [Recovered/Resolved]
  - Diarrhoea [Recovered/Resolved]
  - Diarrhoea [Recovered/Resolved]
  - Blood creatinine increased [Not Recovered/Not Resolved]
  - Drug hypersensitivity [Unknown]
  - Neutropenia [Unknown]
  - Antibody test positive [Unknown]
  - Renal failure [Not Recovered/Not Resolved]
  - Oedema peripheral [Not Recovered/Not Resolved]
  - Respiratory failure [Unknown]
  - Tinnitus [Recovered/Resolved]
  - Tachycardia [Recovered/Resolved]
  - Rash [Unknown]
  - Headache [Recovered/Resolved]
  - Anaemia [Unknown]
  - Fluid overload [Recovered/Resolved]

NARRATIVE: CASE EVENT DATE: 20190819
